FAERS Safety Report 15834080 (Version 2)
Quarter: 2019Q1

REPORT INFORMATION
  Report Type: Report from Study
  Country: CA (occurrence: CA)
  Receive Date: 20190116
  Receipt Date: 20190207
  Transmission Date: 20190417
  Serious: Yes (Other)
  Sender: FDA-Public Use
  Company Number: US-EXELIXIS-XL18419018192

PATIENT
  Age: 72 Year
  Sex: Female
  Weight: 113.9 kg

DRUGS (4)
  1. NIVOLUMAB [Suspect]
     Active Substance: NIVOLUMAB
     Indication: ENDOMETRIAL ADENOCARCINOMA
     Dosage: 240 MG, OVER 60 MINUTES ON DAYS 1 AND DAY 15
     Route: 042
     Dates: start: 20181114
  2. NIVOLUMAB [Suspect]
     Active Substance: NIVOLUMAB
     Dosage: 480 MG, OVER 60 MINUTES ON DAY 1
     Route: 042
  3. XL184 [Suspect]
     Active Substance: CABOZANTINIB
     Indication: ENDOMETRIAL ADENOCARCINOMA
     Dosage: 20 MG, QD
     Route: 048
     Dates: start: 20181114, end: 20181125
  4. XL184 [Suspect]
     Active Substance: CABOZANTINIB
     Dosage: 40 MG, QD
     Route: 048
     Dates: start: 20181126, end: 20181210

REACTIONS (1)
  - Blood creatine phosphokinase increased [Recovering/Resolving]

NARRATIVE: CASE EVENT DATE: 20181126
